FAERS Safety Report 7855233-9 (Version None)
Quarter: 2011Q4

REPORT INFORMATION
  Report Type: 
  Country: None (occurrence: None)
  Receive Date: 20111026
  Receipt Date: 20111018
  Transmission Date: 20120403
  Serious: Yes (Hospitalization, Other)
  Sender: FDA-Public Use
  Company Number: US-PFIZER INC-2011252331

PATIENT
  Sex: Male
  Weight: 85.261 kg

DRUGS (9)
  1. FEXOFENADINE HYDROCHLORIDE [Concomitant]
     Indication: SEASONAL ALLERGY
     Dosage: AS REQUIRED, DURATION: 5 YEARS
     Dates: start: 20060101
  2. EZETIMIBE [Concomitant]
     Indication: BLOOD CHOLESTEROL INCREASED
     Dosage: DURATION 10 YEARS
     Dates: start: 20010101
  3. AZULFIDINE [Suspect]
     Indication: PSORIATIC ARTHROPATHY
  4. LEVOTHYROXINE SODIUM [Concomitant]
     Indication: HYPOTHYROIDISM
     Dosage: DURATION: 2 YEARS
     Dates: start: 20090101
  5. MONTELUKAST SODIUM [Concomitant]
     Indication: SEASONAL ALLERGY
     Dosage: AS REQUIRED, DURATION 5 YEARS
     Dates: start: 20060101
  6. HUMIRA [Suspect]
     Indication: PSORIATIC ARTHROPATHY
     Dosage: 40 MG, 1 IN 2 WK
     Dates: start: 20100101, end: 20100101
  7. HUMIRA [Suspect]
     Dosage: 40 MG, 1 IN 10 DAYS
     Dates: start: 20100101, end: 20110401
  8. HUMIRA [Suspect]
     Dosage: 40 MG, 1 IN 1 WEEK
     Dates: start: 20110401
  9. NEBIVOLOL HYDROCHLORIDE [Concomitant]
     Indication: HYPERTENSION
     Dosage: DURATION 10 YEARS
     Dates: start: 20010101

REACTIONS (12)
  - ADVERSE DRUG REACTION [None]
  - MYOCARDIAL INFARCTION [None]
  - DIZZINESS [None]
  - ARTHRALGIA [None]
  - CARDIAC ENZYMES INCREASED [None]
  - ANXIETY [None]
  - PSORIASIS [None]
  - DRUG INEFFECTIVE [None]
  - DRUG EFFECT DECREASED [None]
  - HEART RATE INCREASED [None]
  - STRESS [None]
  - RASH [None]
